FAERS Safety Report 8304271-0 (Version None)
Quarter: 2012Q2

REPORT INFORMATION
  Report Type: 
  Country: None (occurrence: None)
  Receive Date: 20120423
  Receipt Date: 20120417
  Transmission Date: 20120825
  Serious: Yes (Other)
  Sender: FDA-Public Use
  Company Number: PHEH2012US007304

PATIENT
  Age: 57 Year
  Sex: Female
  Weight: 78.005 kg

DRUGS (7)
  1. BACLOFEN [Concomitant]
     Dosage: UNK UKN, UNK
  2. MIRALAX [Concomitant]
     Dosage: UNK UKN, UNK
  3. LISINOPRIL [Concomitant]
     Dosage: UNK UKN, UNK
  4. GILENYA [Suspect]
     Indication: MULTIPLE SCLEROSIS
     Dosage: 0.5 MG, QD
     Route: 048
     Dates: start: 20120126
  5. PRAVASTATIN [Concomitant]
     Dosage: UNK UKN, UNK
  6. LYRICA [Concomitant]
     Dosage: UNK UKN, UNK
  7. ZOLOFT [Concomitant]
     Dosage: UNK UKN, UNK

REACTIONS (5)
  - LOSS OF CONSCIOUSNESS [None]
  - CYSTITIS [None]
  - FATIGUE [None]
  - DYSPNOEA [None]
  - GASTROOESOPHAGEAL REFLUX DISEASE [None]
